FAERS Safety Report 7372548-1 (Version None)
Quarter: 2011Q1

REPORT INFORMATION
  Report Type: 
  Country: None (occurrence: None)
  Receive Date: 20110324
  Receipt Date: 20110312
  Transmission Date: 20110831
  Serious: Yes (Hospitalization)
  Sender: FDA-Public Use
  Company Number: US-CELGENEUS-163-21880-11032018

PATIENT
  Sex: Female
  Weight: 67.6 kg

DRUGS (1)
  1. REVLIMID [Suspect]
     Indication: MYELODYSPLASTIC SYNDROME
     Dosage: 1.6667 MILLIGRAM
     Route: 048
     Dates: start: 20070720

REACTIONS (3)
  - MYELODYSPLASTIC SYNDROME [None]
  - PNEUMONIA [None]
  - CARDIAC DISORDER [None]
